FAERS Safety Report 4782381-2 (Version None)
Quarter: 2005Q3

REPORT INFORMATION
  Report Type: 
  Country: None (occurrence: None)
  Receive Date: 20050929
  Receipt Date: 20050916
  Transmission Date: 20060218
  Serious: Yes (Other)
  Sender: FDA-Public Use
  Company Number: 2005AP04913

PATIENT
  Age: 11 Year
  Weight: 33 kg

DRUGS (1)
  1. MEROPENEM [Suspect]
     Route: 042

REACTIONS (5)
  - COUGH [None]
  - DYSPNOEA [None]
  - ERYTHEMA [None]
  - SWELLING [None]
  - URTICARIA [None]
